FAERS Safety Report 7102025-4 (Version None)
Quarter: 2010Q4

REPORT INFORMATION
  Report Type: 
  Country: None (occurrence: None)
  Receive Date: 20101109
  Receipt Date: 20101025
  Transmission Date: 20110411
  Serious: Yes (Hospitalization, Other)
  Sender: FDA-Public Use
  Company Number: ACO_20049_2010

PATIENT
  Age: 62 Year
  Sex: Female
  Weight: 73 kg

DRUGS (7)
  1. AMPYRA [Suspect]
     Indication: GAIT DISTURBANCE
     Dosage: 10 MG, Q 12 HRS, ORAL
     Route: 048
     Dates: start: 20101019, end: 20101020
  2. BETASERON [Concomitant]
  3. AMANTADINE HCL [Concomitant]
  4. OXYBUTYNIN CHLORIDE [Concomitant]
  5. BACLOFEN [Concomitant]
  6. CITALOPRAM HYDROBROMIDE [Concomitant]
  7. ANTIBIOTICS [Concomitant]

REACTIONS (4)
  - CONVULSION [None]
  - FOOT FRACTURE [None]
  - ROAD TRAFFIC ACCIDENT [None]
  - URINARY INCONTINENCE [None]
